FAERS Safety Report 18562318 (Version 1)
Quarter: 2020Q4

REPORT INFORMATION
  Report Type: Spontaneous
  Country: US (occurrence: US)
  Receive Date: 20201201
  Receipt Date: 20201201
  Transmission Date: 20210114
  Serious: Yes (Hospitalization, Other)
  Sender: FDA-Public Use
  Company Number: US-DRREDDYS-USA/USA/20/0129396

PATIENT
  Age: 60 Year
  Sex: Female

DRUGS (7)
  1. LEVETIRACETAM. [Suspect]
     Active Substance: LEVETIRACETAM
     Indication: SEIZURE PROPHYLAXIS
     Route: 048
  2. DEXAMETHASONE SODIUM PHOSPHATE INJECTION, 4 MG/ML [Suspect]
     Active Substance: DEXAMETHASONE SODIUM PHOSPHATE
     Route: 042
  3. CODEINE [Suspect]
     Active Substance: CODEINE
     Indication: PAIN
     Dosage: AS NEEDED
  4. DULOXETINE. [Concomitant]
     Active Substance: DULOXETINE
     Indication: DEPRESSION
  5. QUETIAPINE FUMARATE TABLETS [Concomitant]
     Active Substance: QUETIAPINE FUMARATE
     Indication: AFFECTIVE DISORDER
     Dosage: EVERY NIGHT AT BEDTIME
  6. DEXAMETHASONE SODIUM PHOSPHATE INJECTION, 4 MG/ML [Suspect]
     Active Substance: DEXAMETHASONE SODIUM PHOSPHATE
     Indication: BRAIN OEDEMA
     Route: 042
  7. DULOXETINE. [Concomitant]
     Active Substance: DULOXETINE

REACTIONS (13)
  - Speech disorder [Unknown]
  - Depression [Recovering/Resolving]
  - Toxicity to various agents [Recovering/Resolving]
  - Mental status changes [Recovering/Resolving]
  - Personality change [Recovering/Resolving]
  - Patient uncooperative [Recovering/Resolving]
  - Delusion [Recovering/Resolving]
  - Neuropsychiatric symptoms [Recovering/Resolving]
  - Mood altered [Recovering/Resolving]
  - Agitation [Recovering/Resolving]
  - Anger [Recovering/Resolving]
  - Impulsive behaviour [Recovering/Resolving]
  - Irritability [Recovering/Resolving]
